FAERS Safety Report 9733924 (Version 4)
Quarter: 2014Q2

REPORT INFORMATION
  Report Type: Spontaneous
  Country: IT (occurrence: IT)
  Receive Date: 20131205
  Receipt Date: 20140624
  Transmission Date: 20141212
  Serious: Yes (Hospitalization)
  Sender: FDA-Public Use
  Company Number: IT-EISAI INC-E7389-04422-SPO-IT

PATIENT
  Age: 47 Year
  Sex: Female

DRUGS (4)
  1. HALAVEN [Suspect]
     Indication: BREAST NEOPLASM
     Dosage: 2.14 MG
     Route: 041
     Dates: start: 20130924, end: 20131022
  2. PAMIDRONATO DISSODICO HOSPIRA [Concomitant]
     Indication: PRODUCT USED FOR UNKNOWN INDICATION
     Route: 041
     Dates: start: 201209
  3. ENANTONE [Concomitant]
     Indication: PRODUCT USED FOR UNKNOWN INDICATION
     Dosage: 3.75 MG/D
     Dates: start: 200808
  4. ONDANSETRONE HIKMA [Concomitant]
     Indication: PRODUCT USED FOR UNKNOWN INDICATION
     Dosage: 8 MG/D
     Route: 065
     Dates: start: 20130924, end: 20131022

REACTIONS (3)
  - Enteritis [Recovered/Resolved]
  - Febrile neutropenia [Recovered/Resolved]
  - Diarrhoea [Recovered/Resolved]
